FAERS Safety Report 10844930 (Version 3)
Quarter: 2015Q1

REPORT INFORMATION
  Report Type: Spontaneous
  Country: DE (occurrence: DE)
  Receive Date: 20150220
  Receipt Date: 20150316
  Transmission Date: 20150721
  Serious: Yes (Hospitalization)
  Sender: FDA-Public Use
  Company Number: DE-ABBVIE-15P-062-1349003-00

PATIENT
  Age: 82 Year
  Sex: Male

DRUGS (3)
  1. DUODOPA [Suspect]
     Active Substance: CARBIDOPA\LEVODOPA
     Indication: PARKINSON^S DISEASE
     Dosage: MD: 4.5 ML; CRD: 3.5 ML/H; ED: 1 ML
     Route: 050
     Dates: end: 201502
  2. LEVODOPA/BENSERAZIDE [Concomitant]
     Active Substance: BENSERAZIDE\LEVODOPA
     Indication: PRODUCT USED FOR UNKNOWN INDICATION
     Dosage: AT 22PM
  3. DUODOPA [Suspect]
     Active Substance: CARBIDOPA\LEVODOPA
     Dosage: MD: 4.8 ML; CRD: 3.5 ML/H; ED: 1 ML
     Route: 050
     Dates: start: 201502

REACTIONS (13)
  - Viral upper respiratory tract infection [Not Recovered/Not Resolved]
  - Body temperature increased [Recovering/Resolving]
  - Pneumonia [Recovering/Resolving]
  - Disorientation [Unknown]
  - C-reactive protein increased [Recovering/Resolving]
  - Delirium [Recovering/Resolving]
  - White blood cell count increased [Recovering/Resolving]
  - Movement disorder [Unknown]
  - General physical health deterioration [Recovering/Resolving]
  - Pyrexia [Not Recovered/Not Resolved]
  - Hyperkinesia [Not Recovered/Not Resolved]
  - Dysphonia [Unknown]
  - Hypokinesia [Recovering/Resolving]

NARRATIVE: CASE EVENT DATE: 201502
